FAERS Safety Report 6716390-0 (Version None)
Quarter: 2010Q2

REPORT INFORMATION
  Report Type: 
  Country: None (occurrence: None)
  Receive Date: 20100507
  Receipt Date: 20091217
  Transmission Date: 20101027
  Serious: No
  Sender: FDA-Public Use
  Company Number: JP-BAYER-200910472BYL

PATIENT
  Age: 57 Year
  Sex: Male
  Weight: 81 kg

DRUGS (4)
  1. NEXAVAR [Suspect]
     Indication: RENAL CELL CARCINOMA
     Dosage: UNIT DOSE: 200 MG
     Route: 048
     Dates: start: 20080628, end: 20081103
  2. NEXAVAR [Suspect]
     Dosage: UNIT DOSE: 200 MG
     Route: 048
     Dates: start: 20081104, end: 20090117
  3. HALCION [Concomitant]
     Indication: INSOMNIA
     Route: 048
     Dates: start: 20080628
  4. MIYA BM [Concomitant]
     Indication: GASTRITIS PROPHYLAXIS
     Route: 048
     Dates: start: 20090116

REACTIONS (3)
  - DIARRHOEA [None]
  - HAEMORRHOIDAL HAEMORRHAGE [None]
  - HYPERTENSION [None]
